FAERS Safety Report 21912917 (Version 1)
Quarter: 2023Q1

REPORT INFORMATION
  Report Type: Spontaneous
  Country: US (occurrence: US)
  Receive Date: 20230125
  Receipt Date: 20230125
  Transmission Date: 20230418
  Serious: No
  Sender: FDA-Public Use
  Company Number: US-ALLERGAN-2233397US

PATIENT
  Sex: Female

DRUGS (3)
  1. BOTOX [Suspect]
     Active Substance: ONABOTULINUMTOXINA
     Indication: Skin wrinkling
     Dosage: 35 UNITS, SINGLE
     Dates: start: 20220909, end: 20220909
  2. BOTOX [Suspect]
     Active Substance: ONABOTULINUMTOXINA
     Dosage: UNK, SINGLE
     Dates: start: 20220822, end: 20220822
  3. BOTOX [Suspect]
     Active Substance: ONABOTULINUMTOXINA
     Dosage: UNK, SINGLE
     Dates: start: 200806, end: 200806

REACTIONS (7)
  - Eye disorder [Unknown]
  - Feeling abnormal [Unknown]
  - Eyelid disorder [Recovering/Resolving]
  - Anger [Unknown]
  - Facial paralysis [Recovering/Resolving]
  - Facial paresis [Recovering/Resolving]
  - Eyelid ptosis [Unknown]

NARRATIVE: CASE EVENT DATE: 20220901
